FAERS Safety Report 17004825 (Version 2)
Quarter: 2020Q1

REPORT INFORMATION
  Report Type: Spontaneous
  Country: US (occurrence: US)
  Receive Date: 20191107
  Receipt Date: 20200220
  Transmission Date: 20200409
  Serious: Yes (Other)
  Sender: FDA-Public Use
  Company Number: US-MYLANLABS-2019M1104729

PATIENT
  Age: 87 Year
  Sex: Male

DRUGS (299)
  1. POTASSIUM CHLORIDE. [Concomitant]
     Active Substance: POTASSIUM CHLORIDE
     Dosage: 20 MEQ (1 TABELT DAILY)
  2. ABIRATERONE ACETATE. [Concomitant]
     Active Substance: ABIRATERONE ACETATE
     Dosage: 1000 MILLIGRAM
  3. ATORVASTATIN CALCIUM. [Concomitant]
     Active Substance: ATORVASTATIN CALCIUM
     Dosage: TAKE ONE TABLET BY MOUTH DAILY
  4. AMLODIPINE BESYLATE. [Concomitant]
     Active Substance: AMLODIPINE BESYLATE
     Dosage: ONE TABLET BY MOUTH DAILY
  5. AMLODIPINE BESYLATE. [Concomitant]
     Active Substance: AMLODIPINE BESYLATE
     Dosage: ONE TABLET BY MOUTH DAILY
  6. HYDROCORTISONE ACETATE. [Concomitant]
     Active Substance: HYDROCORTISONE ACETATE
     Dosage: INSERT 1 SUPPOSITORY INTO RECTUM DAILY
  7. HYDROCORTISONE. [Concomitant]
     Active Substance: HYDROCORTISONE
     Indication: PAIN
     Dosage: INSERT CREAM INTO RECTUM TWICE DAY AS NEEDED
  8. CARBOXYMETHYLCELLULOSE SODIUM. [Concomitant]
     Active Substance: CARBOXYMETHYLCELLULOSE SODIUM
     Dosage: INSTILL, 1 DROP IN EACH EYE TWICE A DAY
  9. CAPECITABINE. [Concomitant]
     Active Substance: CAPECITABINE
     Dosage: TAKE ONE TABLET BY MOUTH TWICE A DAY TO BE TAKEN MONDAY THROUGH FRIDAY
  10. PROMETHAZINE HCL [Concomitant]
     Active Substance: PROMETHAZINE HYDROCHLORIDE
     Dosage: Q6H (TAKE ONE TABLET BY MOUTH EVERY 6 HOURS AS NEEDED)
  11. PANTOPRAZOLE SODIUM. [Concomitant]
     Active Substance: PANTOPRAZOLE SODIUM
     Dosage: ONE TABLET BY MOUTH TWICE A DAY 30 MINUTES BEFORE MEALS
  12. PANTOPRAZOLE SODIUM. [Concomitant]
     Active Substance: PANTOPRAZOLE SODIUM
     Dosage: ONE TABLET BY MOUTH DAILY 30 MINUTES BEFORE MEALS
  13. BICALUTAMIDE. [Concomitant]
     Active Substance: BICALUTAMIDE
     Dosage: TAKE ONE TABLET BY MOUTH DAILY
  14. MOXIFLOXACIN HCL [Concomitant]
     Active Substance: MOXIFLOXACIN
     Indication: SURGERY
     Dosage: INSTILL 1 DROP IN LEFT EYE, FOUR TIMES A DAY AS DIRECTED FOLLOWING EYE SURGERY
  15. CETIRIZINE HCL [Concomitant]
     Active Substance: CETIRIZINE HYDROCHLORIDE
     Dosage: TAKE ONE TABLET BY MOUTH DAILY
  16. METHYLPREDNISOLONE. [Concomitant]
     Active Substance: METHYLPREDNISOLONE
     Dosage: TAKE TABLETS BY MOUTH TIMES ONE DOSE
  17. TEMAZEPAM. [Concomitant]
     Active Substance: TEMAZEPAM
     Indication: SLEEP DISORDER
     Dosage: TAKE ONE CAPSULE
  18. METOPROLOL TARTRATE. [Concomitant]
     Active Substance: METOPROLOL TARTRATE
     Dosage: ONE-HALF TABLET BY MOUTH DAILY
  19. BACLOFEN. [Concomitant]
     Active Substance: BACLOFEN
     Dosage: ONE TABELT THRICE A DAY
  20. OMEPRAZOLE. [Concomitant]
     Active Substance: OMEPRAZOLE
     Dosage: ONE CAPSULE TWICE A DAY
  21. FEXOFENADINE HCL [Concomitant]
     Active Substance: FEXOFENADINE HYDROCHLORIDE
     Dosage: ONE TABLET DAILY
  22. XARELTO [Concomitant]
     Active Substance: RIVAROXABAN
     Dosage: UNK
  23. RIVAROXABAN [Concomitant]
     Active Substance: RIVAROXABAN
     Dosage: ONE ATBLET EVERY 12 HOURS, 15 MG TWICE A DAY FOR 3 WEEKS
  24. CEFPODOXIME PROXETIL. [Concomitant]
     Active Substance: CEFPODOXIME PROXETIL
     Indication: URINARY TRACT INFECTION
     Dosage: UNK UNK, BID
  25. VALSARTAN. [Suspect]
     Active Substance: VALSARTAN
     Dosage: 160 MILLIGRAM
     Dates: start: 20190603
  26. VALSARTAN. [Suspect]
     Active Substance: VALSARTAN
     Dosage: 160 MILLIGRAM DAILY
  27. VALSARTAN. [Suspect]
     Active Substance: VALSARTAN
     Dosage: 160 MILLIGRAM DAILY
  28. VALSARTAN. [Suspect]
     Active Substance: VALSARTAN
     Dosage: 160 MILLIGRAM DAILY
  29. VALSARTAN. [Suspect]
     Active Substance: VALSARTAN
     Dosage: 160 MILLIGRAM DAILY
  30. RABEPRAZOLE NA [Concomitant]
     Active Substance: RABEPRAZOLE SODIUM
     Dosage: ONE TABLET TWICE A DAY
  31. HYDROCHLOROTHIAZIDE. [Concomitant]
     Active Substance: HYDROCHLOROTHIAZIDE
     Dosage: 1 TABELT DAILY
  32. HYDROCHLOROTHIAZIDE. [Concomitant]
     Active Substance: HYDROCHLOROTHIAZIDE
     Dosage: 1 TABELT DAILY
  33. HYDROCHLOROTHIAZIDE. [Concomitant]
     Active Substance: HYDROCHLOROTHIAZIDE
     Dosage: ONE-HALF TABLET DAILY
  34. HYDROCHLOROTHIAZIDE. [Concomitant]
     Active Substance: HYDROCHLOROTHIAZIDE
     Dosage: ONE-HALF TABLET DAILY
  35. CLARITIN [Concomitant]
     Active Substance: LORATADINE
     Indication: HYPERSENSITIVITY
     Dosage: UNK UNK, QD
     Dates: start: 2004
  36. ZINC OXIDE. [Concomitant]
     Active Substance: ZINC OXIDE
     Dosage: APPLY SMALL AMOUNT AS DIRECTED
  37. CYANOCOBALAMIN. [Concomitant]
     Active Substance: CYANOCOBALAMIN
     Dosage: DAILY
  38. PREDNISONE. [Concomitant]
     Active Substance: PREDNISONE
     Dosage: TAKE ONE TABLET BY MOUTH TWICE A DAY
  39. ABIRATERONE ACETATE. [Concomitant]
     Active Substance: ABIRATERONE ACETATE
     Dosage: TAKE 4TABLETS BY MOUTH DAILY ON AN EMPTY STOMACH
  40. ABIRATERONE ACETATE. [Concomitant]
     Active Substance: ABIRATERONE ACETATE
     Dosage: TAKE FOUR TABLETS BY MOUTH DAILY ON AN EMPTY STOMACH
  41. MAGNESIUM CITRATE. [Concomitant]
     Active Substance: MAGNESIUM CITRATE
     Dosage: TAKE 1 BOTTLE BY MOUTH TIMES ONE DOSE THE DAY
  42. AMLODIPINE BESYLATE. [Concomitant]
     Active Substance: AMLODIPINE BESYLATE
     Indication: BLOOD PRESSURE ABNORMAL
     Dosage: ONE TABLET BY MOUTH DAILY
  43. AMLODIPINE BESYLATE. [Concomitant]
     Active Substance: AMLODIPINE BESYLATE
     Dosage: ONE TABLET BY MOUTH DAILY
  44. AMLODIPINE BESYLATE. [Concomitant]
     Active Substance: AMLODIPINE BESYLATE
     Dosage: ONE TABLET BY MOUTH DAILY
  45. HYDROCORTISONE ACETATE. [Concomitant]
     Active Substance: HYDROCORTISONE ACETATE
     Indication: PROCTALGIA
     Dosage: INSERT 1 SUPPOSITORY INTO RECTUM EVERY 6 HOURS AS NEEDED
  46. METFORMIN HYDROCHLORIDE. [Concomitant]
     Active Substance: METFORMIN HYDROCHLORIDE
     Dosage: TAKE ONE TABLET BY MOUTH TWICE A DAY WITH MORNING AND EVENING
  47. HYDROCORTISONE. [Concomitant]
     Active Substance: HYDROCORTISONE
     Dosage: INSERT CREAM INTO RECTUM TWICE DAY AS NEEDED
  48. POLYVINYL ALCOHOL [Concomitant]
     Active Substance: POLYVINYL ALCOHOL
     Indication: DRY EYE
     Dosage: INSTILL 1 DROP IN AFFECTED EYE, 4 TIMES A DAY AS NEEDED
  49. POLYVINYL ALCOHOL [Concomitant]
     Active Substance: POLYVINYL ALCOHOL
     Dosage: INSTILL 1 DROP IN AFFECTED EYE, 4 TIMES A DAY AS NEEDED
  50. CARBOXYMETHYLCELLULOSE SODIUM. [Concomitant]
     Active Substance: CARBOXYMETHYLCELLULOSE SODIUM
     Dosage: 1 DROP OA 4 TIMES A DAY AS NEEDED
  51. PROMETHAZINE HCL [Concomitant]
     Active Substance: PROMETHAZINE HYDROCHLORIDE
     Dosage: Q6H (TAKE ONE TABLET BY MOUTH EVERY 6 HOURS AS NEEDED)
  52. POLYETHYLENE GLYCOL 3350. [Concomitant]
     Active Substance: POLYETHYLENE GLYCOL 3350
     Dosage: FILL TO TOP OF WHITE, IN CAP, MIX IN LIQUID AND TAKE BY MOUTH DAILY
  53. POTASSIUM CHLORIDE. [Concomitant]
     Active Substance: POTASSIUM CHLORIDE
     Dosage: 10 MEQ (2 TABLETS DAILY)
  54. POTASSIUM CHLORIDE. [Concomitant]
     Active Substance: POTASSIUM CHLORIDE
     Dosage: 10 MEQ (2 TABLETS DAILY)
  55. PREDNISONE. [Concomitant]
     Active Substance: PREDNISONE
     Dosage: 20 MILLIGRAM DAILY
  56. RIVAROXABAN [Concomitant]
     Active Substance: RIVAROXABAN
     Dosage: EVERY EVENING
  57. ALPRAZOLAM. [Concomitant]
     Active Substance: ALPRAZOLAM
     Dosage: ONE TABELT THRICE A DAY
  58. ALPRAZOLAM. [Concomitant]
     Active Substance: ALPRAZOLAM
     Dosage: 0.25 MILLIGRAM, BID
     Dates: end: 20160630
  59. HEPARIN [Concomitant]
     Active Substance: HEPARIN SODIUM
     Dosage: UNK UNK, Q8H (UNDER TEH SKIN)
  60. ELIGARD [Concomitant]
     Active Substance: LEUPROLIDE ACETATE
     Indication: PROSTATE CANCER
     Dosage: 45 MILLIGRAM
  61. VALSARTAN. [Suspect]
     Active Substance: VALSARTAN
     Dosage: 80 MILLIGRAM DAILY
  62. VALSARTAN. [Suspect]
     Active Substance: VALSARTAN
     Dosage: 80 MILLIGRAM DAILY
  63. VALSARTAN. [Suspect]
     Active Substance: VALSARTAN
     Dosage: 80 MILLIGRAM DAILY
  64. VALSARTAN. [Suspect]
     Active Substance: VALSARTAN
     Dosage: 80 MILLIGRAM
     Dates: start: 20020809, end: 20090302
  65. FELODIPINE. [Concomitant]
     Active Substance: FELODIPINE
     Dosage: 1 TABLET DAILY
  66. FELODIPINE. [Concomitant]
     Active Substance: FELODIPINE
     Dosage: 1 TABLET DAILY
  67. FELODIPINE. [Concomitant]
     Active Substance: FELODIPINE
     Dosage: 1 TABLET DAILY
  68. HYDROCHLOROTHIAZIDE. [Concomitant]
     Active Substance: HYDROCHLOROTHIAZIDE
     Indication: BLOOD PRESSURE ABNORMAL
     Dosage: 1 TABELT DAILY
     Dates: start: 20020809, end: 20190823
  69. CYANOCOBALAMIN. [Concomitant]
     Active Substance: CYANOCOBALAMIN
     Dosage: DAILY
  70. POTASSIUM CHLORIDE. [Concomitant]
     Active Substance: POTASSIUM CHLORIDE
     Dosage: 20 MEQ (1 TABELT DAILY)
  71. PREDNISONE. [Concomitant]
     Active Substance: PREDNISONE
     Dosage: TAKE ONE TABLET BY MOUTH TWICE A DAY
  72. ABIRATERONE ACETATE. [Concomitant]
     Active Substance: ABIRATERONE ACETATE
     Dosage: FOUR TABLETS BY MOUTH DAILY ON AN EMPTY STOMACH
  73. ABIRATERONE ACETATE. [Concomitant]
     Active Substance: ABIRATERONE ACETATE
     Dosage: (4 TABLETS AT BED TIME 1 HOUR BEFORE A MEAL OR 2 HOURS AFTER MEAL)
  74. ATORVASTATIN CALCIUM. [Concomitant]
     Active Substance: ATORVASTATIN CALCIUM
     Dosage: TAKE ONE TABLET BY MOUTH DAILY
  75. ATORVASTATIN CALCIUM. [Concomitant]
     Active Substance: ATORVASTATIN CALCIUM
     Dosage: TAKE ONE TABLET BY MOUTH DAILY
  76. AMLODIPINE BESYLATE. [Concomitant]
     Active Substance: AMLODIPINE BESYLATE
     Dosage: ONE TABLET BY MOUTH DAILY
  77. AMLODIPINE BESYLATE. [Concomitant]
     Active Substance: AMLODIPINE BESYLATE
     Dosage: ONE TABLET BY MOUTH DAILY
  78. AMLODIPINE BESYLATE. [Concomitant]
     Active Substance: AMLODIPINE BESYLATE
     Dosage: ONE TABLET BY MOUTH DAILY
  79. HYDROCORTISONE ACETATE. [Concomitant]
     Active Substance: HYDROCORTISONE ACETATE
     Dosage: INSERT 1 SUPPOSITORY INTO RECTUM EVERY 6 HOURS AS NEEDED
  80. HYDROCORTISONE. [Concomitant]
     Active Substance: HYDROCORTISONE
     Dosage: UNK, BID (APPLY THIN FILM TO AFFECTED AREA)
  81. PROMETHAZINE HCL [Concomitant]
     Active Substance: PROMETHAZINE HYDROCHLORIDE
     Dosage: EVERY 6 HOURS AS NEEDED
  82. PANTOPRAZOLE SODIUM. [Concomitant]
     Active Substance: PANTOPRAZOLE SODIUM
     Dosage: ONE TABLET BY MOUTH TWICE A DAY 30 MINUTES BEFORE MEALS
  83. PANTOPRAZOLE SODIUM. [Concomitant]
     Active Substance: PANTOPRAZOLE SODIUM
     Dosage: ONE TABLET BY MOUTH DAILY 30 MINUTES BEFORE MEALS
  84. CIPROFLOXACIN HCL [Concomitant]
     Active Substance: CIPROFLOXACIN HYDROCHLORIDE
     Dosage: INSTILL 2 DROPS IN EACH EYE
  85. KETOROLAC TROMETHAMINE. [Concomitant]
     Active Substance: KETOROLAC TROMETHAMINE
     Indication: SURGERY
     Dosage: INSTILL 1 DROP IN LEFT EYE, FOUR TIMES A DAY AS DIRECTED FOLLOWING EYE SURGERY
  86. AZITHROMYCIN ANHYDROUS. [Concomitant]
     Active Substance: AZITHROMYCIN ANHYDROUS
     Indication: INFECTION
     Dosage: TWO TABLETS BY MOUTH DAILY FOR 1 DAY, THEN TAKE 1 TABLET DAILY FOR 4 DAYS FOR INFECTION
  87. METOPROLOL TARTRATE. [Concomitant]
     Active Substance: METOPROLOL TARTRATE
     Dosage: ONE-HALF TABLET BY MOUTH
  88. METOPROLOL TARTRATE. [Concomitant]
     Active Substance: METOPROLOL TARTRATE
     Dosage: ONE-HALF TABLET BY MOUTH
  89. POTASSIUM CHLORIDE. [Concomitant]
     Active Substance: POTASSIUM CHLORIDE
     Dosage: 10 MEQ (2 TABLETS DAILY)
  90. POTASSIUM CHLORIDE. [Concomitant]
     Active Substance: POTASSIUM CHLORIDE
     Dosage: 10 MEQ (2 TABLETS DAILY)
  91. LORATADINE. [Concomitant]
     Active Substance: LORATADINE
     Dosage: ONE TABLET DAILY
  92. ALPRAZOLAM. [Concomitant]
     Active Substance: ALPRAZOLAM
     Dosage: ONE TABELT THRICE A DAY
  93. VALSARTAN. [Suspect]
     Active Substance: VALSARTAN
     Dosage: 160 MILLIGRAM DAILY
  94. VALSARTAN. [Suspect]
     Active Substance: VALSARTAN
     Dosage: 160 MILLIGRAM DAILY
  95. VALSARTAN. [Suspect]
     Active Substance: VALSARTAN
     Dosage: 160 MILLIGRAM DAILY
  96. FELODIPINE. [Concomitant]
     Active Substance: FELODIPINE
     Indication: HYPERTENSION
     Dosage: 1 TABLET DAILY
     Dates: start: 20020315, end: 20061226
  97. FELODIPINE. [Concomitant]
     Active Substance: FELODIPINE
     Dosage: 1 TABLET DAILY
  98. HYDROCHLOROTHIAZIDE. [Concomitant]
     Active Substance: HYDROCHLOROTHIAZIDE
     Dosage: 1 TABELT DAILY
  99. HYDROCHLOROTHIAZIDE. [Concomitant]
     Active Substance: HYDROCHLOROTHIAZIDE
     Dosage: 1 TABELT DAILY
  100. CALCIUM WITH VITAMIN D             /00944201/ [Concomitant]
     Active Substance: CALCIUM CARBONATE\CHOLECALCIFEROL
     Dosage: UNK UNK, BID
     Dates: start: 2014
  101. POTASSIUM CHLORIDE. [Concomitant]
     Active Substance: POTASSIUM CHLORIDE
     Dosage: 20 MEQ (1 TABELT DAILY)
  102. ABIRATERONE ACETATE. [Concomitant]
     Active Substance: ABIRATERONE ACETATE
     Dosage: TAKE ONE TABLET BY MOUTH EVERY MORNING WITH A LOW FAT BREAKFAST
  103. ABIRATERONE ACETATE. [Concomitant]
     Active Substance: ABIRATERONE ACETATE
     Dosage: TAKE FOUR TABLETS BY MOUTH DAILY ON AN EMPTY STOMACH
  104. ATORVASTATIN CALCIUM. [Concomitant]
     Active Substance: ATORVASTATIN CALCIUM
     Dosage: TAKE ONE TABLET BY MOUTH DAILY
  105. AMLODIPINE BESYLATE. [Concomitant]
     Active Substance: AMLODIPINE BESYLATE
     Dosage: ONE TABLET BY MOUTH DAILY
  106. AMLODIPINE BESYLATE. [Concomitant]
     Active Substance: AMLODIPINE BESYLATE
     Dosage: ONE TABLET BY MOUTH DAILY
  107. AMLODIPINE BESYLATE. [Concomitant]
     Active Substance: AMLODIPINE BESYLATE
     Dosage: ONE TABLET BY MOUTH DAILY
  108. AMLODIPINE BESYLATE. [Concomitant]
     Active Substance: AMLODIPINE BESYLATE
     Dosage: ONE TABLET BY MOUTH DAILY
  109. HYDROCORTISONE ACETATE. [Concomitant]
     Active Substance: HYDROCORTISONE ACETATE
     Dosage: INSERT 1 SUPPOSITORY INTO RECTUM TWICE A DAY
  110. HYDROCORTISONE ACETATE. [Concomitant]
     Active Substance: HYDROCORTISONE ACETATE
     Dosage: INSERT 1 SUPPOSITORY INTO RECTUM EVERY 6 HOURS AS NEEDED
  111. HYDROCORTISONE. [Concomitant]
     Active Substance: HYDROCORTISONE
     Dosage: INSERT CREAM INTO RECTUM TWICE DAY AS NEEDED
  112. POLYVINYL ALCOHOL [Concomitant]
     Active Substance: POLYVINYL ALCOHOL
     Dosage: INSTILL 1 DROP IN AFFECTED EYE, 4 TIMES A DAY AS NEEDED
  113. CARBOXYMETHYLCELLULOSE SODIUM. [Concomitant]
     Active Substance: CARBOXYMETHYLCELLULOSE SODIUM
     Indication: DRY EYE
     Dosage: INSTILL 1 DROP IN AFFECTED EYE FOUR TIMES DAY AS NEEDED
  114. CARBOXYMETHYLCELLULOSE SODIUM. [Concomitant]
     Active Substance: CARBOXYMETHYLCELLULOSE SODIUM
     Dosage: INSTILL 1 DROP IN AFFECTED EYE FOUR TIMES DAY AS NEEDED
  115. PANTOPRAZOLE SODIUM. [Concomitant]
     Active Substance: PANTOPRAZOLE SODIUM
     Dosage: ONE TABLET BY MOUTH DAILY 30 MINUTES BEFORE MEALS
  116. PANTOPRAZOLE SODIUM. [Concomitant]
     Active Substance: PANTOPRAZOLE SODIUM
     Dosage: ONE TABLET BY MOUTH DAILY 30 MINUTES BEFORE MEALS
  117. PANTOPRAZOLE SODIUM. [Concomitant]
     Active Substance: PANTOPRAZOLE SODIUM
     Dosage: ONE TABLET BY MOUTH DAILY 30 MINUTES BEFORE MEALS
  118. PSYLLIUM                           /00029101/ [Concomitant]
     Active Substance: HERBALS\PLANTAGO OVATA LEAF
     Dosage: MIX 2 TEASPOONS IN WATER AND TAKE BY MOUTH
  119. METOCLOPRAMIDE HCL [Concomitant]
     Active Substance: METOCLOPRAMIDE HYDROCHLORIDE
     Dosage: TAKE ONE TABLET BY MOUTH TIMES ONE DOSE
  120. NITROSTAT [Concomitant]
     Active Substance: NITROGLYCERIN
     Indication: CHEST PAIN
     Dosage: DISSOLVE ONE TABLET UNDER THE TONGUE EVERY 5 MINUTES
  121. NITROSTAT [Concomitant]
     Active Substance: NITROGLYCERIN
     Dosage: DISSOLVE ONE TABLET UNDER THE TONGUE EVERY 5 MINUTES
  122. METOPROLOL TARTRATE. [Concomitant]
     Active Substance: METOPROLOL TARTRATE
     Dosage: ONE-HALF TABLET BY MOUTH DAILY
  123. METOPROLOL TARTRATE. [Concomitant]
     Active Substance: METOPROLOL TARTRATE
     Dosage: ONE-HALF TABLET BY MOUTH
  124. LANSOPRAZOLE. [Concomitant]
     Active Substance: LANSOPRAZOLE
     Dosage: UNK UNK, BID
  125. FEXOFENADINE HCL [Concomitant]
     Active Substance: FEXOFENADINE HYDROCHLORIDE
     Dosage: ONE TABLET DAILY
  126. PREDNISONE. [Concomitant]
     Active Substance: PREDNISONE
     Dosage: 20 MILLIGRAM DAILY
  127. SODIUM CHLORIDE. [Concomitant]
     Active Substance: SODIUM CHLORIDE
  128. ELIGARD [Concomitant]
     Active Substance: LEUPROLIDE ACETATE
     Dosage: 45 MILLIGRAM
  129. VALSARTAN. [Suspect]
     Active Substance: VALSARTAN
     Dosage: 160 MILLIGRAM DAILY
  130. VALSARTAN. [Suspect]
     Active Substance: VALSARTAN
     Dosage: 160 MILLIGRAM DAILY
  131. VALSARTAN. [Suspect]
     Active Substance: VALSARTAN
     Dosage: 160 MILLIGRAM DAILY
  132. VALSARTAN. [Suspect]
     Active Substance: VALSARTAN
     Dosage: 160 MILLIGRAM DAILY
  133. VALSARTAN. [Suspect]
     Active Substance: VALSARTAN
     Dosage: 80 MILLIGRAM DAILY
  134. VALSARTAN. [Suspect]
     Active Substance: VALSARTAN
     Dosage: 80 MILLIGRAM DAILY
  135. VALSARTAN. [Suspect]
     Active Substance: VALSARTAN
     Dosage: 160 MILLIGRAM DAILY
  136. VALSARTAN. [Suspect]
     Active Substance: VALSARTAN
     Dosage: 160 MILLIGRAM DAILY
  137. HYDROCHLOROTHIAZIDE. [Concomitant]
     Active Substance: HYDROCHLOROTHIAZIDE
     Dosage: 1 TABELT DAILY
  138. HYDROCHLOROTHIAZIDE. [Concomitant]
     Active Substance: HYDROCHLOROTHIAZIDE
     Dosage: ONE-HALF TABLET DAILY
  139. HYDROCHLOROTHIAZIDE. [Concomitant]
     Active Substance: HYDROCHLOROTHIAZIDE
     Dosage: ONE-HALF TABLET DAILY
  140. ZINC OXIDE. [Concomitant]
     Active Substance: ZINC OXIDE
     Dosage: APPLY SMALL AMOUNT AS DIRECTED
  141. POTASSIUM CHLORIDE. [Concomitant]
     Active Substance: POTASSIUM CHLORIDE
     Dosage: 20 MEQ (1 TABELT DAILY)
  142. POTASSIUM CHLORIDE. [Concomitant]
     Active Substance: POTASSIUM CHLORIDE
     Dosage: 20 MEQ (1 TABELT DAILY)
  143. POTASSIUM CHLORIDE. [Concomitant]
     Active Substance: POTASSIUM CHLORIDE
     Dosage: 20 MEQ (1 TABELT DAILY)
  144. ABIRATERONE ACETATE. [Concomitant]
     Active Substance: ABIRATERONE ACETATE
     Dosage: TAKE FOUR TABLETS BY MOUTH DAILY ON AN EMPTY STOMACH
  145. ABIRATERONE ACETATE. [Concomitant]
     Active Substance: ABIRATERONE ACETATE
     Dosage: (4 TABLETS AT BED TIME 1 HOUR BEFORE A MEAL OR 2 HOURS AFTER MEAL)
  146. ATORVASTATIN CALCIUM. [Concomitant]
     Active Substance: ATORVASTATIN CALCIUM
     Dosage: TAKE ONE TABLET BY MOUTH DAILY
  147. ATORVASTATIN CALCIUM. [Concomitant]
     Active Substance: ATORVASTATIN CALCIUM
     Dosage: 20 MILLIGRAM DAILY
  148. MAGNESIUM CITRATE. [Concomitant]
     Active Substance: MAGNESIUM CITRATE
     Dosage: TAKE 1 BOTTLE BY MOUTH TIMES ONE DOSE THE DAY
  149. MAGNESIUM CITRATE. [Concomitant]
     Active Substance: MAGNESIUM CITRATE
     Dosage: TAKE 1 BOTTLE BY MOUTH TIMES ONE DOSE THE DAY
  150. MAGNESIUM CITRATE. [Concomitant]
     Active Substance: MAGNESIUM CITRATE
     Dosage: TAKE 1 BOTTLE BY MOUTH AS DIRECTED
  151. AMLODIPINE BESYLATE. [Concomitant]
     Active Substance: AMLODIPINE BESYLATE
     Dosage: ONE TABLET BY MOUTH DAILY
  152. AMLODIPINE BESYLATE. [Concomitant]
     Active Substance: AMLODIPINE BESYLATE
     Dosage: ONE TABLET BY MOUTH DAILY
  153. HYDROCORTISONE. [Concomitant]
     Active Substance: HYDROCORTISONE
     Dosage: UNK, BID (APPLY THIN FILM TO AFFECTED AREA)
  154. POLYVINYL ALCOHOL [Concomitant]
     Active Substance: POLYVINYL ALCOHOL
     Dosage: INSTILL, 1 DROP IN EACH FOUR TIMES A DAY
  155. CARBOXYMETHYLCELLULOSE SODIUM. [Concomitant]
     Active Substance: CARBOXYMETHYLCELLULOSE SODIUM
     Dosage: INSTILL 1 DROP IN AFFECTED EYE FOUR TIMES DAY AS NEEDED
  156. PANTOPRAZOLE SODIUM. [Concomitant]
     Active Substance: PANTOPRAZOLE SODIUM
     Dosage: ONE TABLET BY MOUTH DAILY 30 MINUTES BEFORE MEALS
  157. PANTOPRAZOLE SODIUM. [Concomitant]
     Active Substance: PANTOPRAZOLE SODIUM
     Dosage: ONE TABLET BY MOUTH TWICE A DAY 30 MINUTES BEFORE MEALS
  158. PANTOPRAZOLE SODIUM. [Concomitant]
     Active Substance: PANTOPRAZOLE SODIUM
     Dosage: ONE TABLET BY MOUTH DAILY 30 MINUTES BEFORE MEALS
  159. BICALUTAMIDE. [Concomitant]
     Active Substance: BICALUTAMIDE
     Dosage: TAKE ONE TABLET BY MOUTH DAILY
  160. BISACODYL. [Concomitant]
     Active Substance: BISACODYL
     Dosage: TAKE 4 TABLETS BY MOUTH WITH GLASS OF COLON LAVAGE
  161. METOCLOPRAMIDE HCL [Concomitant]
     Active Substance: METOCLOPRAMIDE HYDROCHLORIDE
     Dosage: TAKE ONE TABLET AS DIRECTED AT 1130 AND 1330 DAY BEFORE TEST
  162. SIMVASTATIN. [Concomitant]
     Active Substance: SIMVASTATIN
     Dosage: TAKE ONE-HALF TABLET BY MOUTH EVERY EVENING
  163. SERTRALINE HCL [Concomitant]
     Active Substance: SERTRALINE HYDROCHLORIDE
     Dosage: ONE HALF TABLET BY MOUTH EVERY MORNING
  164. ASPIRIN                            /00002701/ [Concomitant]
     Active Substance: ASPIRIN
     Dosage: ONE TABLET BY MOUTH DAILY
  165. METOPROLOL TARTRATE. [Concomitant]
     Active Substance: METOPROLOL TARTRATE
     Dosage: ONE-HALF TABLET BY MOUTH DAILY
  166. POTASSIUM CHLORIDE. [Concomitant]
     Active Substance: POTASSIUM CHLORIDE
     Dosage: 10 MEQ (2 TABLETS DAILY)
  167. BACLOFEN. [Concomitant]
     Active Substance: BACLOFEN
     Dosage: ONE TABELT THRICE A DAY
  168. NAPROXEN. [Concomitant]
     Active Substance: NAPROXEN
     Dosage: ONE TABLET TWICE DAILY AS NEEDED
  169. NAPROXEN. [Concomitant]
     Active Substance: NAPROXEN
     Dosage: ONE TABLET TWICE DAILY AS NEEDED
  170. LORATADINE. [Concomitant]
     Active Substance: LORATADINE
     Dosage: ONE TABLET DAILY
  171. TIAZAC [Concomitant]
     Active Substance: DILTIAZEM HYDROCHLORIDE
     Dosage: UNK
  172. CEPODOXIME [Concomitant]
     Indication: URINARY TRACT INFECTION
     Dosage: UNK, BID
  173. FOLIC ACID. [Concomitant]
     Active Substance: FOLIC ACID
     Dosage: UNK
  174. ALPRAZOLAM. [Concomitant]
     Active Substance: ALPRAZOLAM
     Dosage: ONE TABELT THRICE A DAY
  175. ALPRAZOLAM. [Concomitant]
     Active Substance: ALPRAZOLAM
     Dosage: ONE TABELT THRICE A DAY
  176. GABAPENTIN. [Concomitant]
     Active Substance: GABAPENTIN
     Dosage: UNK, BID
  177. MIRTAZAPINE. [Concomitant]
     Active Substance: MIRTAZAPINE
     Dosage: ONE TABLET AT BED TIME
  178. VALSARTAN. [Suspect]
     Active Substance: VALSARTAN
     Dosage: 160 MILLIGRAM DAILY
  179. VALSARTAN. [Suspect]
     Active Substance: VALSARTAN
     Dosage: 160 MILLIGRAM DAILY
  180. VALSARTAN. [Suspect]
     Active Substance: VALSARTAN
     Dosage: 160 MILLIGRAM DAILY
  181. VALSARTAN. [Suspect]
     Active Substance: VALSARTAN
     Dosage: 160 MILLIGRAM DAILY
  182. VALSARTAN. [Suspect]
     Active Substance: VALSARTAN
     Dosage: 80 MILLIGRAM DAILY
  183. VALSARTAN. [Suspect]
     Active Substance: VALSARTAN
     Dosage: 160 MILLIGRAM DAILY
  184. FELODIPINE. [Concomitant]
     Active Substance: FELODIPINE
     Dosage: 1 TABLET DAILY
  185. FEXOFENADINE HCL [Concomitant]
     Active Substance: FEXOFENADINE HYDROCHLORIDE
     Indication: HYPERSENSITIVITY
     Dosage: UNK
     Dates: start: 20020809, end: 20030710
  186. HYDROCHLOROTHIAZIDE. [Concomitant]
     Active Substance: HYDROCHLOROTHIAZIDE
     Dosage: 1 TABELT DAILY
  187. HYDROCHLOROTHIAZIDE. [Concomitant]
     Active Substance: HYDROCHLOROTHIAZIDE
     Dosage: 1 TABELT DAILY
  188. HYDROCHLOROTHIAZIDE. [Concomitant]
     Active Substance: HYDROCHLOROTHIAZIDE
     Dosage: ONE-HALF TABLET DAILY
  189. HYDROCHLOROTHIAZIDE. [Concomitant]
     Active Substance: HYDROCHLOROTHIAZIDE
     Dosage: ONE-HALF TABLET DAILY
  190. CYANOCOBALAMIN. [Concomitant]
     Active Substance: CYANOCOBALAMIN
     Dosage: DAILY
  191. POTASSIUM CHLORIDE. [Concomitant]
     Active Substance: POTASSIUM CHLORIDE
     Dosage: 20 MEQ (1 TABELT DAILY)
  192. POTASSIUM CHLORIDE. [Concomitant]
     Active Substance: POTASSIUM CHLORIDE
     Dosage: 20 MEQ (1 TABELT TWICE A DAY)
  193. PREDNISONE. [Concomitant]
     Active Substance: PREDNISONE
     Dosage: BID (1 TABLET TWICE A DAY)
  194. ABIRATERONE ACETATE. [Concomitant]
     Active Substance: ABIRATERONE ACETATE
     Dosage: (4 TABLETS AT BED TIME 1 HOUR BEFORE A MEAL OR 2 HOURS AFTER MEAL)
  195. ABIRATERONE ACETATE. [Concomitant]
     Active Substance: ABIRATERONE ACETATE
     Dosage: (4 TABLETS AT BED TIME 1 HOUR BEFORE A MEAL OR 2 HOURS AFTER MEAL)
  196. ABIRATERONE ACETATE. [Concomitant]
     Active Substance: ABIRATERONE ACETATE
     Dosage: (4 TABLETS AT BED TIME 1 HOUR BEFORE A MEAL OR 2 HOURS AFTER MEAL)
  197. ATORVASTATIN CALCIUM. [Concomitant]
     Active Substance: ATORVASTATIN CALCIUM
     Indication: BLOOD CHOLESTEROL DECREASED
     Dosage: UNK, QD (1 TABLET DAILY)
  198. AMLODIPINE BESYLATE. [Concomitant]
     Active Substance: AMLODIPINE BESYLATE
     Dosage: ONE TABLET BY MOUTH DAILY
  199. HYDROCORTISONE. [Concomitant]
     Active Substance: HYDROCORTISONE
     Dosage: INSERT CREAM INTO RECTUM TWICE DAY AS NEEDED
  200. POLYVINYL ALCOHOL [Concomitant]
     Active Substance: POLYVINYL ALCOHOL
     Dosage: INSTILL, 1 DROP IN EACH FOUR TIMES A DAY
  201. POLYETHYLENE GLYCOL 3350. [Concomitant]
     Active Substance: POLYETHYLENE GLYCOL 3350
     Dosage: FILL TO TOP OF WHITE, IN CAP, MIX IN LIQUID AND TAKE BY MOUTH DAILY
  202. PANTOPRAZOLE SODIUM. [Concomitant]
     Active Substance: PANTOPRAZOLE SODIUM
     Dosage: ONE TABLET BY MOUTH DAILY 30 MINUTES BEFORE MEALS
  203. PANTOPRAZOLE SODIUM. [Concomitant]
     Active Substance: PANTOPRAZOLE SODIUM
     Dosage: ONE TABLET BY MOUTH DAILY
  204. PANTOPRAZOLE SODIUM. [Concomitant]
     Active Substance: PANTOPRAZOLE SODIUM
     Dosage: 40 MILLIGRAM DAILY
  205. SIMVASTIN [Concomitant]
     Active Substance: SIMVASTATIN
     Indication: BLOOD CHOLESTEROL DECREASED
     Dosage: ONE HALF TABLETBYMOUTH EVERY EVENING
  206. HYDRALAZINE HCL [Concomitant]
     Active Substance: HYDRALAZINE HYDROCHLORIDE
     Dosage: TAKE TWO TABLETS THRICE A DAY
  207. METOPROLOL TARTRATE. [Concomitant]
     Active Substance: METOPROLOL TARTRATE
     Dosage: ONE-HALF TABLET BY MOUTH
  208. IBUPROFEN. [Concomitant]
     Active Substance: IBUPROFEN
     Indication: PAIN
     Dosage: ONE TABLET BY MOUTH THREE TIMES A DAY MEALS AS NEEDED
  209. POTASSIUM CHLORIDE. [Concomitant]
     Active Substance: POTASSIUM CHLORIDE
     Dosage: 10 MEQ (2 TABLETS DAILY)
  210. POTASSIUM CHLORIDE. [Concomitant]
     Active Substance: POTASSIUM CHLORIDE
     Dosage: 10 MEQ (2 TABLETS DAILY)
  211. BACLOFEN. [Concomitant]
     Active Substance: BACLOFEN
     Dosage: ONE TABELT THRICE A DAY
  212. BACLOFEN. [Concomitant]
     Active Substance: BACLOFEN
     Dosage: ONE TABELT THRICE A DAY
  213. ASPIRIN                            /00002701/ [Concomitant]
     Active Substance: ASPIRIN
     Dosage: ONE TABLET EVERYDAY
  214. CEFPODOXIME [Concomitant]
     Active Substance: CEFPODOXIME
  215. ALPRAZOLAM. [Concomitant]
     Active Substance: ALPRAZOLAM
     Dosage: 0.25 MILLIGRAM, BID
     Dates: end: 20180514
  216. ALPRAZOLAM. [Concomitant]
     Active Substance: ALPRAZOLAM
     Dosage: 0.25 MILLIGRAM, TID
  217. VALSARTAN. [Suspect]
     Active Substance: VALSARTAN
     Dosage: 160 MILLIGRAM
     Dates: start: 20080229, end: 20170823
  218. VALSARTAN. [Suspect]
     Active Substance: VALSARTAN
     Dosage: 160 MILLIGRAM DAILY
  219. VALSARTAN. [Suspect]
     Active Substance: VALSARTAN
     Dosage: 160 MILLIGRAM DAILY
  220. FELODIPINE. [Concomitant]
     Active Substance: FELODIPINE
     Dosage: 1 TABLET DAILY
  221. RABEPRAZOLE NA [Concomitant]
     Active Substance: RABEPRAZOLE SODIUM
     Dosage: ONE TABLET TWICE A DAY
  222. HYDROCHLOROTHIAZIDE. [Concomitant]
     Active Substance: HYDROCHLOROTHIAZIDE
     Dosage: 1 TABELT DAILY
  223. CYANOCOBALAMIN. [Concomitant]
     Active Substance: CYANOCOBALAMIN
     Dosage: DAILY
  224. POTASSIUM CHLORIDE. [Concomitant]
     Active Substance: POTASSIUM CHLORIDE
     Dosage: 20 MEQ (1 TABELT DAILY)
  225. POTASSIUM CHLORIDE. [Concomitant]
     Active Substance: POTASSIUM CHLORIDE
     Dosage: 20 MEQ (1 TABELT DAILY)
  226. PREDNISONE. [Concomitant]
     Active Substance: PREDNISONE
     Indication: PROSTATE CANCER
     Dosage: BID (1 TABLET TWICE A DAY)
  227. PREDNISONE. [Concomitant]
     Active Substance: PREDNISONE
     Dosage: TAKE ONE TABLET BY MOUTH TWICE A DAY
  228. ABIRATERONE ACETATE. [Concomitant]
     Active Substance: ABIRATERONE ACETATE
     Indication: PROSTATE CANCER
     Dosage: (4 TABLETS AT BED TIME 1 HOUR BEFORE A MEAL OR 2 HOURS AFTER MEAL)
  229. ABIRATERONE ACETATE. [Concomitant]
     Active Substance: ABIRATERONE ACETATE
     Dosage: TAKE FOUR TABLETS BY MOUTH DAILY ON AN EMPTY STOMACH
  230. ABIRATERONE ACETATE. [Concomitant]
     Active Substance: ABIRATERONE ACETATE
     Dosage: UNK
     Dates: start: 20181029
  231. ATORVASTATIN CALCIUM. [Concomitant]
     Active Substance: ATORVASTATIN CALCIUM
     Dosage: TAKE ONE TABLET BY MOUTH DAILY
  232. MAGNESIUM CITRATE. [Concomitant]
     Active Substance: MAGNESIUM CITRATE
     Dosage: 1 BOTTLE BY MOUTH TIMES ONE DOSE
  233. AMLODIPINE BESYLATE. [Concomitant]
     Active Substance: AMLODIPINE BESYLATE
     Dosage: ONE TABLET BY MOUTH DAILY
  234. HYDROCORTISONE ACETATE. [Concomitant]
     Active Substance: HYDROCORTISONE ACETATE
     Dosage: INSERT 1 SUPPOSITORY INTO RECTUM THREE TIMES A DAY AS NEEDED
  235. HYDROCORTISONE. [Concomitant]
     Active Substance: HYDROCORTISONE
     Dosage: UNK, BID (APPLY THIN FILM TO AFFECTED AREA)
  236. HYDROCORTISONE. [Concomitant]
     Active Substance: HYDROCORTISONE
     Dosage: INSERT CREAM INTO RECTUM TWICE DAY AS NEEDED
  237. CARBOXYMETHYLCELLULOSE SODIUM. [Concomitant]
     Active Substance: CARBOXYMETHYLCELLULOSE SODIUM
     Dosage: INSTILL 1 DROP IN AFFECTED EYE FOUR TIMES DAY AS NEEDED
  238. PROMETHAZINE HCL [Concomitant]
     Active Substance: PROMETHAZINE HYDROCHLORIDE
     Dosage: ONE TABLET BY MOUTH THREETIMES A DAY AS NEEDED
  239. PANTOPRAZOLE SODIUM. [Concomitant]
     Active Substance: PANTOPRAZOLE SODIUM
     Dosage: ONE TABLET BY MOUTH DAILY 30 MINUTES BEFORE MEALS
  240. PANTOPRAZOLE SODIUM. [Concomitant]
     Active Substance: PANTOPRAZOLE SODIUM
     Dosage: ONE TABLET BY MOUTH DAILY 30 MINUTES BEFORE MEALS
  241. BICALUTAMIDE. [Concomitant]
     Active Substance: BICALUTAMIDE
     Dosage: TAKE ONE TABLET BY MOUTH DAILY
  242. BISACODYL. [Concomitant]
     Active Substance: BISACODYL
     Dosage: TAKE 4 TABLETS BY MOUTH TIMES ONE DOSE
  243. BISACODYL. [Concomitant]
     Active Substance: BISACODYL
     Dosage: TAKE 4 TABLETS BY MOUTH TIMES ONE DOSE
  244. METOCLOPRAMIDE HCL [Concomitant]
     Active Substance: METOCLOPRAMIDE HYDROCHLORIDE
     Dosage: TAKE ONE TABLET BY MOUTH TIMES ONE DOSE
  245. TRIAMCINOLONE ACETONIDE. [Concomitant]
     Active Substance: TRIAMCINOLONE ACETONIDE
     Dosage: APPLY SMALL AMOUNT TO AFFECTED AREA TWICE A DAY
  246. TRIAMCINOLONE ACETONIDE. [Concomitant]
     Active Substance: TRIAMCINOLONE ACETONIDE
     Dosage: APPLY SMALL AMOUNT TO AFFECTED AREA TWICE A DAY
  247. SIMVASTATIN. [Concomitant]
     Active Substance: SIMVASTATIN
     Indication: BLOOD CHOLESTEROL DECREASED
     Dosage: TAKE ONE-HALF TABLET BY MOUTH EVERY EVENING
  248. SULFACETAMIDE SODIUM. [Concomitant]
     Active Substance: SULFACETAMIDE SODIUM
     Dosage: INSTILL 2 DROPS TO EACH EYE FOUR TIMES A DAY AS NEEDED
  249. HYDRALAZINE HCL [Concomitant]
     Active Substance: HYDRALAZINE HYDROCHLORIDE
     Dosage: TAKE TWO TABLETS THRICE A DAY
  250. METOPROLOL TARTRATE. [Concomitant]
     Active Substance: METOPROLOL TARTRATE
     Dosage: ONE-HALF TABLET BY MOUTH
  251. LORATADINE. [Concomitant]
     Active Substance: LORATADINE
     Dosage: ONE TABLET DAILY
  252. METOPROLOL TARTRATE. [Concomitant]
     Active Substance: METOPROLOL TARTRATE
     Indication: BLOOD PRESSURE ABNORMAL
     Dosage: HALF TABLET TWICE A DAY
  253. CEFTRIAXONE. [Concomitant]
     Active Substance: CEFTRIAXONE
     Dosage: UNK
  254. LACTATED RINGERS SOLUTION [Concomitant]
     Active Substance: CALCIUM CHLORIDE\POTASSIUM CHLORIDE\SODIUM CHLORIDE\SODIUM LACTATE
  255. ELIGARD [Concomitant]
     Active Substance: LEUPROLIDE ACETATE
     Dosage: 45 MILLIGRAM
  256. VALSARTAN. [Suspect]
     Active Substance: VALSARTAN
     Dosage: 160 MILLIGRAM DAILY
  257. VALSARTAN. [Suspect]
     Active Substance: VALSARTAN
     Dosage: 80 MILLIGRAM DAILY
  258. FELODIPINE. [Concomitant]
     Active Substance: FELODIPINE
     Dosage: 1 TABLET DAILY
  259. FELODIPINE. [Concomitant]
     Active Substance: FELODIPINE
     Dosage: 1 TABLET DAILY
  260. RABEPRAZOLE NA [Concomitant]
     Active Substance: RABEPRAZOLE SODIUM
     Dosage: ONE TABLET DAILY
  261. RABEPRAZOLE NA [Concomitant]
     Active Substance: RABEPRAZOLE SODIUM
     Dosage: ONE TABLET DAILY
  262. HYDROCHLOROTHIAZIDE. [Concomitant]
     Active Substance: HYDROCHLOROTHIAZIDE
     Dosage: 1 TABELT DAILY
  263. HYDROCHLOROTHIAZIDE. [Concomitant]
     Active Substance: HYDROCHLOROTHIAZIDE
     Dosage: 1 TABELT DAILY
  264. HYDROCHLOROTHIAZIDE. [Concomitant]
     Active Substance: HYDROCHLOROTHIAZIDE
     Dosage: 1 TABELT DAILY
  265. HYDROCHLOROTHIAZIDE. [Concomitant]
     Active Substance: HYDROCHLOROTHIAZIDE
     Dosage: ONE-HALF TABLET DAILY
  266. HYDROCHLOROTHIAZIDE. [Concomitant]
     Active Substance: HYDROCHLOROTHIAZIDE
     Dosage: ONE-HALF TABLET DAILY
  267. HYDROCHLOROTHIAZIDE. [Concomitant]
     Active Substance: HYDROCHLOROTHIAZIDE
     Dosage: ONE-HALF TABLET DAILY
  268. HYDROCHLOROTHIAZIDE. [Concomitant]
     Active Substance: HYDROCHLOROTHIAZIDE
     Dosage: 1 TABELT DAILY
  269. ZINC OXIDE. [Concomitant]
     Active Substance: ZINC OXIDE
     Dosage: APPLY SMALL AMOUNT AS DIRECTED
  270. POTASSIUM CHLORIDE. [Concomitant]
     Active Substance: POTASSIUM CHLORIDE
     Dosage: 20 MEQ (1 TABELT DAILY)
  271. PREDNISONE. [Concomitant]
     Active Substance: PREDNISONE
     Dosage: 5 MILLIGRAM
  272. AMLODIPINE BESYLATE. [Concomitant]
     Active Substance: AMLODIPINE BESYLATE
     Indication: CONSTIPATION
     Dosage: ONE TABLET BY MOUTH DAILY
  273. AMLODIPINE BESYLATE. [Concomitant]
     Active Substance: AMLODIPINE BESYLATE
     Dosage: ONE TABLET BY MOUTH DAILY
  274. AMLODIPINE BESYLATE. [Concomitant]
     Active Substance: AMLODIPINE BESYLATE
     Dosage: ONE TABLET BY MOUTH DAILY
  275. HYDROCORTISONE ACETATE. [Concomitant]
     Active Substance: HYDROCORTISONE ACETATE
     Dosage: INSERT 1 SUPPOSITORY INTO RECTUM EVERY 6 HOURS AS NEEDED
  276. HYDROCORTISONE. [Concomitant]
     Active Substance: HYDROCORTISONE
     Dosage: INSERT CREAM INTO RECTUM TWICE DAY AS NEEDED
  277. POLYVINYL ALCOHOL [Concomitant]
     Active Substance: POLYVINYL ALCOHOL
     Dosage: INSTILL 1 DROP IN AFFECTED EYE, 4 TIMES A DAY AS NEEDED
  278. POLYVINYL ALCOHOL [Concomitant]
     Active Substance: POLYVINYL ALCOHOL
     Dosage: INSTILL 1 DROP IN AFFECTED EYE, 4 TIMES A DAY AS NEEDED
  279. PROMETHAZINE HCL [Concomitant]
     Active Substance: PROMETHAZINE HYDROCHLORIDE
     Dosage: 25 MILLIGRAM
  280. POLYETHYLENE GLYCOL 3350. [Concomitant]
     Active Substance: POLYETHYLENE GLYCOL 3350
     Dosage: FILL TO TOP OF WHITE, IN CAP, MIX IN LIQUID AND TAKE BY MOUTH DAILY
  281. POLYETHYLENE GLYCOL 3350. [Concomitant]
     Active Substance: POLYETHYLENE GLYCOL 3350
     Dosage: FILL TO TOP OF WHITE, IN CAP, MIX IN LIQUID AND TAKE BY MOUTH DAILY
  282. PANTOPRAZOLE SODIUM. [Concomitant]
     Active Substance: PANTOPRAZOLE SODIUM
     Dosage: ONE TABLET BY MOUTH TWICE A DAY 30 MINUTES BEFORE MEALS
  283. PANTOPRAZOLE SODIUM. [Concomitant]
     Active Substance: PANTOPRAZOLE SODIUM
     Dosage: ONE TABLET BY MOUTH TWICE A DAY 30 MINUTES BEFORE MEALS
  284. PANTOPRAZOLE SODIUM. [Concomitant]
     Active Substance: PANTOPRAZOLE SODIUM
     Dosage: ONE TABLET BY MOUTH DAILY
  285. PREDNISOLONE ACETATE. [Concomitant]
     Active Substance: PREDNISOLONE ACETATE
     Indication: SURGERY
     Dosage: INSTILL 1 DROP IN LEFT EYE, FOUR TIMES A DAY AS DIRECTED FOLLOWING EYE SURGERY
  286. BISACODYL. [Concomitant]
     Active Substance: BISACODYL
     Dosage: TAKE 4 TABLETS BY MOUTH TIMES ONE DOSE
  287. GEMFIBROZIL. [Concomitant]
     Active Substance: GEMFIBROZIL
     Indication: BLOOD CHOLESTEROL DECREASED
     Dosage: ONE TABLET BY MOUTH TWICE A DAY BEFORE MEALS
  288. METOPROLOL TARTRATE. [Concomitant]
     Active Substance: METOPROLOL TARTRATE
     Indication: BLOOD PRESSURE ABNORMAL
     Dosage: ONE-HALF TABLET BY MOUTH DAILY
  289. METOPROLOL TARTRATE. [Concomitant]
     Active Substance: METOPROLOL TARTRATE
     Dosage: ONE-HALF TABLET BY MOUTH DAILY
  290. NAPROXEN. [Concomitant]
     Active Substance: NAPROXEN
     Indication: BLOOD PRESSURE ABNORMAL
     Dosage: ONE TABLET TWICE DAILY AS NEEDED
  291. NAPROXEN. [Concomitant]
     Active Substance: NAPROXEN
     Dosage: ONE TABLET TWICE DAILY
  292. VALSARTAN. [Suspect]
     Active Substance: VALSARTAN
     Dosage: 160 MILLIGRAM
     Dates: start: 20180903, end: 20190305
  293. VALSARTAN. [Suspect]
     Active Substance: VALSARTAN
     Dosage: 80 MILLIGRAM DAILY
  294. VALSARTAN. [Suspect]
     Active Substance: VALSARTAN
     Dosage: 80 MILLIGRAM DAILY
  295. RABEPRAZOLE NA [Concomitant]
     Active Substance: RABEPRAZOLE SODIUM
     Dosage: ONE TABLET DAILY
     Dates: start: 20020219, end: 20040524
  296. HYDROCHLOROTHIAZIDE. [Concomitant]
     Active Substance: HYDROCHLOROTHIAZIDE
     Dosage: ONE-HALF TABLET DAILY
  297. CYANOCOBALAMIN. [Concomitant]
     Active Substance: CYANOCOBALAMIN
     Dosage: DAILY
  298. POTASSIUM CHLORIDE. [Concomitant]
     Active Substance: POTASSIUM CHLORIDE
     Dosage: 20 MEQ (1 TABELT DAILY)
  299. POTASSIUM CHLORIDE. [Concomitant]
     Active Substance: POTASSIUM CHLORIDE
     Dosage: 20 MEQ (1 TABELT DAILY)

REACTIONS (2)
  - Recalled product administered [Unknown]
  - Rectal cancer [Unknown]

NARRATIVE: CASE EVENT DATE: 201901
